FAERS Safety Report 6379833-0 (Version None)
Quarter: 2009Q3

REPORT INFORMATION
  Report Type: 
  Country: None (occurrence: None)
  Receive Date: 20090928
  Receipt Date: 20090306
  Transmission Date: 20100115
  Serious: No
  Sender: FDA-Public Use
  Company Number: US-TYCO HEALTHCARE/MALLINCKRODT-T200900616

PATIENT
  Age: 55 Year
  Sex: Male
  Weight: 113.38 kg

DRUGS (3)
  1. ACETAMINOPHEN AND HYDROCODONE BITARTRATE [Suspect]
     Indication: PAIN
     Dosage: 7.5/325MG, 1 TO 2 TABS A DAY
     Route: 048
     Dates: start: 20090201
  2. LYRICA [Concomitant]
     Dosage: 75 MG, QD
     Route: 048
  3. CYMBALTA [Concomitant]
     Dosage: UNK
     Route: 048

REACTIONS (1)
  - DRUG EFFECT DECREASED [None]
